FAERS Safety Report 11943522 (Version 1)
Quarter: 2016Q1

REPORT INFORMATION
  Report Type: Spontaneous
  Country: BR (occurrence: BR)
  Receive Date: 20160125
  Receipt Date: 20160125
  Transmission Date: 20160526
  Serious: Yes (Other)
  Sender: FDA-Public Use
  Company Number: BR-ROCHE-1697758

PATIENT
  Sex: Female
  Weight: 66 kg

DRUGS (6)
  1. SYNTHROID [Concomitant]
     Active Substance: LEVOTHYROXINE SODIUM
     Indication: THYROID DISORDER
  2. CORTISONE [Concomitant]
     Active Substance: CORTISONE\HYDROCORTISONE
     Indication: COLLAGEN DISORDER
     Dosage: STARTED 2 YEARS PRIOT TO THIS REPORT
     Route: 065
  3. BACTRIM DS [Suspect]
     Active Substance: SULFAMETHOXAZOLE\TRIMETHOPRIM
     Indication: PRODUCT USED FOR UNKNOWN INDICATION
     Route: 065
  4. CORTISONE [Concomitant]
     Active Substance: CORTISONE\HYDROCORTISONE
     Indication: INFLAMMATION
  5. RIVOTRIL [Suspect]
     Active Substance: CLONAZEPAM
     Indication: ANXIETY
     Route: 065
     Dates: start: 2012
  6. CORTISONE [Concomitant]
     Active Substance: CORTISONE\HYDROCORTISONE
     Indication: INFECTION
     Route: 065
     Dates: start: 2014

REACTIONS (7)
  - Urinary tract infection [Not Recovered/Not Resolved]
  - Aortic aneurysm [Not Recovered/Not Resolved]
  - Underdose [Unknown]
  - Choking [Unknown]
  - Malaise [Unknown]
  - Drug dependence [Unknown]
  - Ulcer [Not Recovered/Not Resolved]
